FAERS Safety Report 7432603-4 (Version None)
Quarter: 2011Q2

REPORT INFORMATION
  Report Type: 
  Country: None (occurrence: None)
  Receive Date: 20110422
  Receipt Date: 20110415
  Transmission Date: 20111010
  Serious: Yes (Hospitalization, Other)
  Sender: FDA-Public Use
  Company Number: FR-PFIZER INC-2011082868

PATIENT
  Age: 78 Year
  Sex: Male

DRUGS (5)
  1. ART 50 [Suspect]
     Dosage: 50 MG 1 DF, 1X/DAY
     Route: 048
     Dates: end: 20110110
  2. TAHOR [Suspect]
     Dosage: 10 MG, 1 DF 1X/DAY
     Route: 048
     Dates: end: 20110110
  3. PREVISCAN [Suspect]
     Dosage: 15 MG, 0.75 DF 1X/DAY
     Route: 048
     Dates: start: 20020101, end: 20110110
  4. KARDEGIC [Suspect]
     Dosage: 75 MG, 1 DF 1X/DAY
     Route: 048
     Dates: start: 20101001, end: 20101201
  5. COAPROVEL [Suspect]
     Dosage: [300MG/12.5MG] 1DF, 1X/DAY
     Dates: end: 20110110

REACTIONS (4)
  - PURPURA [None]
  - PULSE ABNORMAL [None]
  - C-REACTIVE PROTEIN INCREASED [None]
  - OEDEMA PERIPHERAL [None]
